FAERS Safety Report 21610086 (Version 8)
Quarter: 2023Q4

REPORT INFORMATION
  Report Type: Report from Study
  Country: CO (occurrence: CO)
  Receive Date: 20221117
  Receipt Date: 20231215
  Transmission Date: 20240110
  Serious: Yes (Life-Threatening, Hospitalization, Other)
  Sender: FDA-Public Use
  Company Number: CO-TAKEDA-CO202033068

PATIENT
  Age: 12 Year
  Sex: Male
  Weight: 24 kg

DRUGS (7)
  1. IDURSULFASE [Suspect]
     Active Substance: IDURSULFASE
     Indication: Mucopolysaccharidosis II
     Dosage: 12 MILLIGRAM, 1/WEEK
     Route: 042
     Dates: start: 20201021
  2. IDURSULFASE [Suspect]
     Active Substance: IDURSULFASE
     Dosage: 0.5 MILLIGRAM, 1/WEEK
     Route: 042
  3. IDURSULFASE [Suspect]
     Active Substance: IDURSULFASE
     Dosage: 1 DOSAGE FORM, 1/WEEK
     Route: 042
  4. IDURSULFASE [Suspect]
     Active Substance: IDURSULFASE
     Dosage: 12 MILLIGRAM
     Route: 065
  5. IDURSULFASE [Suspect]
     Active Substance: IDURSULFASE
     Dosage: 12.5 MILLIGRAM, 1/WEEK
     Route: 042
  6. IDURSULFASE [Suspect]
     Active Substance: IDURSULFASE
     Dosage: 12 MILLIGRAM, 1/WEEK
     Route: 042
  7. VALPROIC ACID [Concomitant]
     Active Substance: VALPROIC ACID
     Indication: Product used for unknown indication
     Dosage: UNK
     Route: 065

REACTIONS (15)
  - Dyspnoea [Recovered/Resolved]
  - Seizure [Recovered/Resolved]
  - Pneumonia [Recovering/Resolving]
  - Catheter site oedema [Unknown]
  - Influenza [Recovering/Resolving]
  - Malaise [Recovered/Resolved]
  - Rhinorrhoea [Recovering/Resolving]
  - Weight decreased [Unknown]
  - Insurance issue [Unknown]
  - Treatment noncompliance [Unknown]
  - Cough [Recovering/Resolving]
  - Pyrexia [Recovering/Resolving]
  - Inappropriate schedule of product administration [Unknown]
  - Product dose omission issue [Unknown]
  - Product prescribing error [Unknown]

NARRATIVE: CASE EVENT DATE: 20201023
